FAERS Safety Report 25595095 (Version 2)
Quarter: 2025Q3

REPORT INFORMATION
  Report Type: Spontaneous
  Country: GB (occurrence: GB)
  Receive Date: 20250723
  Receipt Date: 20250909
  Transmission Date: 20251020
  Serious: Yes (Other)
  Sender: RANBAXY
  Company Number: GB-SUN PHARMACEUTICAL INDUSTRIES LTD-2025RR-517747

PATIENT
  Age: 4 Decade
  Sex: Male

DRUGS (13)
  1. SERTRALINE [Suspect]
     Active Substance: SERTRALINE HYDROCHLORIDE
     Indication: Obsessive-compulsive disorder
     Dosage: 100 MILLIGRAM, OD
     Route: 048
     Dates: start: 201110, end: 202306
  2. VENLAFAXINE [Suspect]
     Active Substance: VENLAFAXINE HYDROCHLORIDE
     Indication: Obsessive-compulsive disorder
     Dosage: 75 MILLIGRAM, BID
     Route: 048
     Dates: start: 201305, end: 201409
  3. BUPRENORPHINE [Suspect]
     Active Substance: BUPRENORPHINE
     Indication: Obsessive-compulsive disorder
     Dosage: 2 MILLIGRAM, OD
     Route: 060
     Dates: start: 20240912
  4. BUPRENORPHINE [Suspect]
     Active Substance: BUPRENORPHINE
     Dosage: 4 MILLIGRAM, DAILY
     Route: 060
  5. BUPRENORPHINE [Suspect]
     Active Substance: BUPRENORPHINE
     Dosage: 2 MILLIGRAM, DAILY
     Route: 060
  6. FLUOXETINE [Suspect]
     Active Substance: FLUOXETINE HYDROCHLORIDE
     Indication: Obsessive-compulsive disorder
     Dosage: 20 MILLIGRAM, OD
     Route: 048
     Dates: start: 201112, end: 201605
  7. MIRTAZAPINE [Suspect]
     Active Substance: MIRTAZAPINE
     Indication: Obsessive-compulsive disorder
     Route: 048
     Dates: start: 201306, end: 201306
  8. VORTIOXETINE [Suspect]
     Active Substance: VORTIOXETINE
     Indication: Obsessive-compulsive disorder
     Dosage: 10 MILLIGRAM, OD
     Route: 048
     Dates: start: 201706, end: 202312
  9. NALTREXONE [Suspect]
     Active Substance: NALTREXONE
     Indication: Prophylaxis
     Route: 065
  10. BUPROPION [Concomitant]
     Active Substance: BUPROPION
     Indication: Depression
     Dosage: 150 MILLIGRAM, BID
     Route: 065
  11. BUPRENORPHINE [Concomitant]
     Active Substance: BUPRENORPHINE
     Indication: Dependence
     Dosage: 2 MILLIGRAM, OD
     Route: 065
  12. CYCLIZINE [Concomitant]
     Active Substance: CYCLIZINE
     Indication: Seasonal allergy
     Dosage: 50 MILLIGRAM, OD
     Route: 065
  13. MELATONIN [Concomitant]
     Active Substance: MELATONIN
     Indication: Insomnia
     Route: 065

REACTIONS (13)
  - Therapeutic product effect incomplete [Recovered/Resolved]
  - Increased appetite [Recovered/Resolved]
  - Lethargy [Recovered/Resolved]
  - Acne [Recovered/Resolved]
  - Confusional state [Recovered/Resolved]
  - Asthenia [Recovered/Resolved]
  - Somnolence [Recovered/Resolved]
  - Nausea [Recovered/Resolved]
  - Constipation [Recovered/Resolved]
  - Suicidal ideation [Recovering/Resolving]
  - Irritability [Recovering/Resolving]
  - Insomnia [Recovering/Resolving]
  - Myalgia [Recovering/Resolving]
